FAERS Safety Report 4336940-1 (Version None)
Quarter: 2004Q2

REPORT INFORMATION
  Report Type: 
  Country: None (occurrence: None)
  Receive Date: 20040408
  Receipt Date: 20040324
  Transmission Date: 20050107
  Serious: Yes (Life-Threatening, Hospitalization)
  Sender: FDA-Public Use
  Company Number: 1997UW40239

PATIENT
  Age: 38 Year
  Sex: Male

DRUGS (4)
  1. ATENOLOL [Suspect]
  2. CARDIZEM [Suspect]
  3. NITROGLYCERIN [Concomitant]
  4. SORBANGYL [Concomitant]

REACTIONS (21)
  - BLOOD CREATINE INCREASED [None]
  - BLOOD CREATININE INCREASED [None]
  - BLOOD GLUCOSE INCREASED [None]
  - BLOOD PH DECREASED [None]
  - BODY TEMPERATURE DECREASED [None]
  - BRADYCARDIA [None]
  - CARDIAC ARREST [None]
  - DEPRESSED LEVEL OF CONSCIOUSNESS [None]
  - DRUG INTERACTION [None]
  - DRUG SCREEN POSITIVE [None]
  - HAEMORRHAGE [None]
  - HYPOTENSION [None]
  - HYPOXIA [None]
  - INTENTIONAL OVERDOSE [None]
  - JOINT INJURY [None]
  - MULTIPLE DRUG OVERDOSE [None]
  - MYOCARDIAL INFARCTION [None]
  - OLIGURIA [None]
  - PNEUMONIA [None]
  - SELF INJURIOUS BEHAVIOUR [None]
  - SUICIDE ATTEMPT [None]
